FAERS Safety Report 7939082-9 (Version None)
Quarter: 2011Q4

REPORT INFORMATION
  Report Type: 
  Country: None (occurrence: None)
  Receive Date: 20111124
  Receipt Date: 20111118
  Transmission Date: 20120403
  Serious: Yes (Other)
  Sender: FDA-Public Use
  Company Number: US-PFIZER INC-2011284376

PATIENT
  Age: 70 Year
  Sex: Male

DRUGS (2)
  1. ATORVASTATIN CALCIUM [Suspect]
     Dosage: UNK
  2. SIMVASTATIN [Suspect]
     Dosage: UNK

REACTIONS (7)
  - MENTAL IMPAIRMENT [None]
  - ARTHRALGIA [None]
  - AGGRESSION [None]
  - MYALGIA [None]
  - DEPRESSION [None]
  - IRRITABILITY [None]
  - MYOPATHY [None]
